FAERS Safety Report 18879322 (Version 1)
Quarter: 2021Q1

REPORT INFORMATION
  Report Type: Report from Study
  Country: US (occurrence: US)
  Receive Date: 20210211
  Receipt Date: 20210211
  Transmission Date: 20210420
  Serious: Yes (Other)
  Sender: FDA-Public Use
  Company Number: US-EMD SERONO-9217119

PATIENT
  Age: 41 Year
  Sex: Female

DRUGS (1)
  1. REBIF [Suspect]
     Active Substance: INTERFERON BETA-1A
     Indication: MULTIPLE SCLEROSIS
     Route: 058
     Dates: start: 2003

REACTIONS (3)
  - Product dose omission issue [Not Recovered/Not Resolved]
  - Product prescribing issue [Recovered/Resolved]
  - Spinal operation [Unknown]

NARRATIVE: CASE EVENT DATE: 2018
